FAERS Safety Report 18102385 (Version 1)
Quarter: 2020Q3

REPORT INFORMATION
  Report Type: Other
  Country: US (occurrence: US)
  Receive Date: 20200803
  Receipt Date: 20200803
  Transmission Date: 20201103
  Serious: Yes (Death)
  Sender: FDA-Public Use
  Company Number: US-ROCHE-2652577

PATIENT
  Sex: Female

DRUGS (3)
  1. ABEMACICLIB [Suspect]
     Active Substance: ABEMACICLIB
     Indication: HER2 POSITIVE BREAST CANCER
     Dosage: DAYS 1?21 OF A 21 DAY CYCLE
     Route: 048
  2. TRASTUZUMAB. [Suspect]
     Active Substance: TRASTUZUMAB
     Indication: HER2 POSITIVE BREAST CANCER
     Dosage: DAY 1 OF 21 DAY CYCLE
     Route: 042
  3. TRASTUZUMAB. [Suspect]
     Active Substance: TRASTUZUMAB
     Dosage: MAINTENANCE DOSE IV INFUSION ON DAY 1 OF EACH SUBSEQUENT 21?DAY CYCLE
     Route: 042

REACTIONS (1)
  - Pulmonary fibrosis [Fatal]
